FAERS Safety Report 5159203-3 (Version None)
Quarter: 2006Q4

REPORT INFORMATION
  Report Type: 
  Country: None (occurrence: None)
  Receive Date: 20061117
  Receipt Date: 20061114
  Transmission Date: 20070319
  Serious: Yes (Other)
  Sender: FDA-Public Use
  Company Number: CAWYE539115NOV06

PATIENT
  Sex: Female

DRUGS (1)
  1. ALESSE [Suspect]
     Dosage: ORAL
     Route: 048

REACTIONS (2)
  - DEEP VEIN THROMBOSIS [None]
  - SPORTS INJURY [None]
